FAERS Safety Report 4331739-4 (Version None)
Quarter: 2004Q2

REPORT INFORMATION
  Report Type: 
  Country: None (occurrence: None)
  Receive Date: 20040405
  Receipt Date: 20030515
  Transmission Date: 20050107
  Serious: No
  Sender: FDA-Public Use
  Company Number: US-GLAXOSMITHKLINE-A0408664A

PATIENT
  Age: 10 Year
  Sex: Female
  Weight: 55 kg

DRUGS (2)
  1. FLOVENT [Suspect]
     Indication: ASTHMA
     Dosage: 220MCG TWICE PER DAY
     Route: 055
  2. STEROID [Concomitant]
     Indication: ECZEMA
     Route: 061

REACTIONS (1)
  - INTRAOCULAR PRESSURE INCREASED [None]
